FAERS Safety Report 23533771 (Version 6)
Quarter: 2024Q2

REPORT INFORMATION
  Report Type: Spontaneous
  Country: US (occurrence: US)
  Receive Date: 20240216
  Receipt Date: 20240627
  Transmission Date: 20240717
  Serious: Yes (Disabling, Other)
  Sender: FDA-Public Use
  Company Number: US-ORGANON-O2402USA001533

PATIENT
  Sex: Female

DRUGS (2)
  1. SINGULAIR [Suspect]
     Active Substance: MONTELUKAST SODIUM
     Indication: Asthma
     Dosage: 10 MG
     Route: 048
     Dates: start: 2011, end: 2017
  2. SINGULAIR [Suspect]
     Active Substance: MONTELUKAST SODIUM
     Indication: Chronic obstructive pulmonary disease
     Dosage: 10 MG
     Route: 048
     Dates: start: 2017, end: 2020

REACTIONS (17)
  - Neuropsychological symptoms [Unknown]
  - Suicidal ideation [Unknown]
  - Suicide attempt [Unknown]
  - Depression [Unknown]
  - Agitation [Unknown]
  - Aggression [Unknown]
  - Sleep disorder [Unknown]
  - Muscle spasms [Unknown]
  - Eye irritation [Unknown]
  - Sleep apnoea syndrome [Unknown]
  - Arnold-Chiari malformation [Unknown]
  - Diabetes mellitus [Unknown]
  - Essential hypertension [Unknown]
  - Obstructive airways disorder [Unknown]
  - Hypersensitivity [Unknown]
  - Rhinitis allergic [Unknown]
  - Asthma [Unknown]

NARRATIVE: CASE EVENT DATE: 20110101
